FAERS Safety Report 23416060 (Version 1)
Quarter: 2024Q1

REPORT INFORMATION
  Report Type: Spontaneous
  Country: US (occurrence: None)
  Receive Date: 20240117
  Receipt Date: 20240117
  Transmission Date: 20240409
  Serious: Yes (Other)
  Sender: FDA-Public Use
  Company Number: None

PATIENT
  Sex: Male

DRUGS (3)
  1. HEMLIBRA [Suspect]
     Active Substance: EMICIZUMAB-KXWH
     Indication: Factor VIII activity decreased
     Dosage: OTHER QUANTITY : 60MG/O.4ML;?FREQUENCY : DAILY;?
     Route: 058
     Dates: start: 20230811
  2. ADYNOVATE [Concomitant]
     Active Substance: ANTIHEMOPHILIC FACTOR, HUMAN RECOMBINANT
  3. OXYCONTIN [Concomitant]
     Active Substance: OXYCODONE HYDROCHLORIDE

REACTIONS (6)
  - Fall [None]
  - Back injury [None]
  - Stress fracture [None]
  - Impaired work ability [None]
  - Product use issue [None]
  - Product expiration date issue [None]
